FAERS Safety Report 8948031 (Version 3)
Quarter: 2014Q1

REPORT INFORMATION
  Report Type: Spontaneous
  Country: US (occurrence: US)
  Receive Date: 20121204
  Receipt Date: 20140306
  Transmission Date: 20141002
  Serious: Yes (Other)
  Sender: FDA-Public Use
  Company Number: US-ASTRAZENECA-2012SE28486

PATIENT
  Age: 69 Year
  Sex: Male

DRUGS (2)
  1. NEXIUM [Suspect]
     Indication: GASTROOESOPHAGEAL REFLUX DISEASE
     Route: 048
     Dates: start: 2011, end: 20140223
  2. CRESTOR [Suspect]
     Route: 048

REACTIONS (4)
  - Cerebrovascular accident [Unknown]
  - Diabetes mellitus [Unknown]
  - Intentional drug misuse [Unknown]
  - Drug dose omission [Unknown]
